FAERS Safety Report 4817088-6 (Version None)
Quarter: 2005Q4

REPORT INFORMATION
  Report Type: 
  Country: None (occurrence: None)
  Receive Date: 20051101
  Receipt Date: 20051021
  Transmission Date: 20060501
  Serious: Yes (Hospitalization)
  Sender: FDA-Public Use
  Company Number: AU-BRISTOL-MYERS SQUIBB COMPANY-13153937

PATIENT
  Age: 31 Year
  Sex: Female

DRUGS (9)
  1. IRBESARTAN [Suspect]
  2. PERINDOPRIL [Concomitant]
  3. SIMVASTATIN [Concomitant]
  4. CALCITRIOL [Concomitant]
  5. ESOMEPRAZOLE MAGNESIUM [Concomitant]
  6. CALCIUM CARBONATE [Concomitant]
  7. FERROUS SULFATE TAB [Concomitant]
  8. ERGOCALCIFEROL [Concomitant]
  9. LEVONORGESTREL [Concomitant]

REACTIONS (2)
  - CHEST DISCOMFORT [None]
  - MUSCLE SPASMS [None]
